FAERS Safety Report 5873644-8 (Version None)
Quarter: 2008Q3

REPORT INFORMATION
  Report Type: 
  Country: None (occurrence: None)
  Receive Date: 20080908
  Receipt Date: 20080902
  Transmission Date: 20090109
  Serious: Yes (Death, Hospitalization)
  Sender: FDA-Public Use
  Company Number: A0745397A

PATIENT
  Sex: Male

DRUGS (4)
  1. ADVAIR DISKUS 100/50 [Suspect]
     Indication: ASTHMA
     Route: 065
  2. MULTIPLE MEDICATIONS [Concomitant]
  3. UNSPECIFIED TREATMENT [Concomitant]
  4. OXYGEN [Concomitant]

REACTIONS (2)
  - DEATH [None]
  - PNEUMONIA [None]
